FAERS Safety Report 6794630-X (Version None)
Quarter: 2010Q2

REPORT INFORMATION
  Report Type: 
  Country: None (occurrence: None)
  Receive Date: 20100625
  Receipt Date: 20100621
  Transmission Date: 20101027
  Serious: Yes (Hospitalization, Other)
  Sender: FDA-Public Use
  Company Number: US-JNJFOC-20100305558

PATIENT
  Sex: Male

DRUGS (4)
  1. LEVAQUIN [Suspect]
     Indication: SINUSITIS
     Route: 048
  2. LEVAQUIN [Suspect]
     Indication: URINARY TRACT INFECTION
     Route: 048
  3. LEVAQUIN [Suspect]
     Route: 042
  4. CIPRO [Suspect]
     Indication: SINUSITIS
     Route: 065

REACTIONS (14)
  - ARTHRALGIA [None]
  - DEPRESSION [None]
  - FLUSHING [None]
  - GASTRIC DISORDER [None]
  - JOINT SPRAIN [None]
  - PRURITUS [None]
  - RASH [None]
  - RESPIRATORY DISORDER [None]
  - ROTATOR CUFF SYNDROME [None]
  - TENDON DISORDER [None]
  - TENDON RUPTURE [None]
  - TENDONITIS [None]
  - TENOSYNOVITIS [None]
  - UNEVALUABLE EVENT [None]
